FAERS Safety Report 19097342 (Version 1)
Quarter: 2021Q2

REPORT INFORMATION
  Report Type: Spontaneous
  Country: SE (occurrence: SE)
  Receive Date: 20210406
  Receipt Date: 20210406
  Transmission Date: 20210717
  Serious: Yes (Other)
  Sender: FDA-Public Use
  Company Number: SE-MYLANLABS-2021M1020151

PATIENT
  Age: 63 Year
  Sex: Male

DRUGS (1)
  1. DIKLOFENAK ?MYLAN? [Suspect]
     Active Substance: DICLOFENAC SODIUM
     Indication: ARTHROPATHY
     Dosage: UNK
     Dates: end: 20201215

REACTIONS (4)
  - Depression [Unknown]
  - Tinnitus [Unknown]
  - Deafness unilateral [Unknown]
  - Hyperacusis [Unknown]

NARRATIVE: CASE EVENT DATE: 20201215
